FAERS Safety Report 25795240 (Version 1)
Quarter: 2025Q3

REPORT INFORMATION
  Report Type: Spontaneous
  Country: EU (occurrence: EU)
  Receive Date: 20250912
  Receipt Date: 20250912
  Transmission Date: 20251020
  Serious: Yes (Life-Threatening, Other)
  Sender: HIKMA
  Company Number: None

PATIENT
  Age: 30 Year
  Sex: Male
  Weight: 98 kg

DRUGS (3)
  1. AMOXICILLIN\CLAVULANATE POTASSIUM [Suspect]
     Active Substance: AMOXICILLIN\CLAVULANATE POTASSIUM
     Indication: Product used for unknown indication
     Route: 042
     Dates: start: 20250814, end: 20250814
  2. PANTOPRAZOLE [Suspect]
     Active Substance: PANTOPRAZOLE
     Indication: Product used for unknown indication
     Route: 042
     Dates: start: 20250814
  3. CEFAMEZIN [CEFAZOLIN SODIUM] [Concomitant]
     Indication: Product used for unknown indication
     Route: 065

REACTIONS (3)
  - Laryngospasm [Recovering/Resolving]
  - Hypotension [Recovering/Resolving]
  - Rash [Recovering/Resolving]

NARRATIVE: CASE EVENT DATE: 20250814
